FAERS Safety Report 12737802 (Version 2)
Quarter: 2017Q2

REPORT INFORMATION
  Report Type: Spontaneous
  Country: US (occurrence: US)
  Receive Date: 20160912
  Receipt Date: 20170517
  Transmission Date: 20170830
  Serious: No
  Sender: FDA-Public Use
  Company Number: US-SA-2016SA121357

PATIENT
  Age: 62 Year
  Sex: Male
  Weight: 81.64 kg

DRUGS (4)
  1. APIDRA [Suspect]
     Active Substance: INSULIN GLULISINE
     Indication: DIABETES MELLITUS
     Dosage: DOSE:5-15 UNITS\15 + TID
     Route: 065
     Dates: start: 201202
  2. SOLOSTAR [Concomitant]
     Active Substance: DEVICE
     Dates: end: 20170209
  3. LANTUS [Concomitant]
     Active Substance: INSULIN GLARGINE
  4. TOUJEO [Suspect]
     Active Substance: INSULIN GLARGINE
     Indication: DIABETES MELLITUS
     Dosage: DOSE:24 UNIT(S)
     Route: 065
     Dates: end: 20170209

REACTIONS (3)
  - Blood glucose increased [Unknown]
  - Product use issue [Unknown]
  - Blood glucose abnormal [Unknown]

NARRATIVE: CASE EVENT DATE: 201607
